FAERS Safety Report 9032670 (Version 2)
Quarter: 2013Q1

REPORT INFORMATION
  Report Type: Spontaneous
  Country: US (occurrence: US)
  Receive Date: 20130126
  Receipt Date: 20130224
  Transmission Date: 20140127
  Serious: Yes (Hospitalization, Other)
  Sender: FDA-Public Use
  Company Number: US-ROXANE LABORATORIES, INC.-2013-RO-00128RO

PATIENT
  Age: 9 Year
  Sex: Female

DRUGS (27)
  1. DEXAMETHASONE [Suspect]
     Indication: ACUTE LYMPHOCYTIC LEUKAEMIA
     Dosage: 18 MG
     Route: 048
     Dates: start: 20121127, end: 20121223
  2. DASATINIB [Suspect]
     Indication: ACUTE LYMPHOCYTIC LEUKAEMIA
     Dosage: 45 MG
     Route: 048
     Dates: start: 20121120, end: 20121208
  3. IFOSAMIDE [Suspect]
     Indication: ACUTE LYMPHOCYTIC LEUKAEMIA
     Dosage: 730 MG
     Route: 042
     Dates: start: 20121128, end: 20121130
  4. ETOPOSIDE [Suspect]
     Indication: ACUTE LYMPHOCYTIC LEUKAEMIA
     Dosage: 180 MG
     Route: 042
     Dates: start: 20121221, end: 20121223
  5. METHOTREXATE [Suspect]
     Indication: ACUTE LYMPHOCYTIC LEUKAEMIA
     Dosage: 4550 MG
     Route: 037
     Dates: start: 20121127
  6. METHOTREXATE [Suspect]
     Dosage: 12 MG
     Route: 037
     Dates: start: 20121224
  7. VINCRISTINE [Suspect]
     Indication: ACUTE LYMPHOCYTIC LEUKAEMIA
     Dosage: 1.4 MG
     Route: 042
     Dates: start: 20121128
  8. VINCRISTINE [Suspect]
     Dosage: 1.4 MG
     Route: 042
     Dates: start: 20121202
  9. CYTARABINE [Suspect]
     Indication: ACUTE LYMPHOCYTIC LEUKAEMIA
     Dosage: 1820 MG
     Route: 042
     Dates: start: 20121219, end: 20121220
  10. CYTARABINE [Suspect]
     Dosage: 30 MG
     Route: 037
     Dates: start: 20121224
  11. DAUNORUBICIN [Suspect]
     Indication: ACUTE LYMPHOCYTIC LEUKAEMIA
     Dosage: 27 MG
     Route: 042
     Dates: start: 20121201, end: 20121201
  12. PEGASPARGASE [Suspect]
     Indication: ACUTE LYMPHOCYTIC LEUKAEMIA
     Route: 042
     Dates: start: 20121202, end: 20121203
  13. ELSPAR [Suspect]
     Indication: ACUTE LYMPHOCYTIC LEUKAEMIA
     Route: 042
     Dates: start: 20121202, end: 20121202
  14. GRANULOCYTE COLONY STIMULATING FACTOR [Suspect]
     Indication: ACUTE LYMPHOCYTIC LEUKAEMIA
     Dosage: 120 MCG
     Route: 058
     Dates: start: 20121224
  15. HYDROCORTISONE [Suspect]
     Indication: ACUTE LYMPHOCYTIC LEUKAEMIA
     Dosage: 12 MG
     Route: 037
     Dates: start: 20121224
  16. DIPHENHYDRAMINE [Concomitant]
     Dates: start: 20121127, end: 20121204
  17. ONDANSETRON [Concomitant]
     Dates: start: 20121010, end: 20121204
  18. SODIUM CHOLIRDE [Concomitant]
     Dates: start: 20120803
  19. LORATADINE [Concomitant]
     Dates: start: 20121127, end: 20121204
  20. DEXTROSE [Concomitant]
  21. EPIPEN [Concomitant]
     Dates: start: 20121202, end: 20121202
  22. LASIX [Concomitant]
     Dates: start: 20121129, end: 20121129
  23. CHLORHEXIDINE GLUCONATE/BENZYDAMINE HCL [Concomitant]
     Dates: start: 20121127, end: 20121204
  24. FAMOTIDINE [Concomitant]
     Dates: start: 20121127, end: 20121204
  25. LEUCOVORIN [Concomitant]
     Dates: start: 20121129, end: 20121201
  26. SULFAMETHOXAZOLE/TRIMETHOPRIM [Concomitant]
     Dates: start: 20121202, end: 20121204
  27. ACETAMINOPHEN [Concomitant]

REACTIONS (9)
  - Febrile neutropenia [Not Recovered/Not Resolved]
  - Dehydration [Recovered/Resolved with Sequelae]
  - Hyponatraemia [Recovered/Resolved]
  - Mucosal inflammation [Recovered/Resolved]
  - Pneumonia [Recovered/Resolved]
  - Diarrhoea [Not Recovered/Not Resolved]
  - Thrombocytopenia [Not Recovered/Not Resolved]
  - Enterocolitis [Not Recovered/Not Resolved]
  - Hypokalaemia [Not Recovered/Not Resolved]
